FAERS Safety Report 17394822 (Version 1)
Quarter: 2020Q1

REPORT INFORMATION
  Report Type: Spontaneous
  Country: FR (occurrence: FR)
  Receive Date: 20200210
  Receipt Date: 20200210
  Transmission Date: 20200409
  Serious: Yes (Hospitalization)
  Sender: FDA-Public Use
  Company Number: FR-ZYDUS-047333

PATIENT
  Age: 65 Year
  Sex: Male
  Weight: 105 kg

DRUGS (4)
  1. CEFTRIAXONE. [Suspect]
     Active Substance: CEFTRIAXONE
     Indication: PYELONEPHRITIS
     Route: 042
     Dates: start: 20191218, end: 20191227
  2. GENTAMICIN/GENTAMICIN SULFATE [Suspect]
     Active Substance: GENTAMICIN SULFATE
     Indication: PYELONEPHRITIS
     Dosage: IN TOTAL
     Route: 042
     Dates: start: 20191219, end: 20191219
  3. OFLOXACIN/OFLOXACIN HYDROCHLORIDE [Suspect]
     Active Substance: OFLOXACIN HYDROCHLORIDE
     Indication: PYELONEPHRITIS
     Route: 048
     Dates: start: 20191220, end: 20191223
  4. CANDESARTAN CILEXETIL. [Suspect]
     Active Substance: CANDESARTAN CILEXETIL
     Indication: PRODUCT USED FOR UNKNOWN INDICATION
     Route: 048
     Dates: start: 20191015, end: 20191219

REACTIONS (2)
  - Acute kidney injury [Recovered/Resolved]
  - Cardiac failure [Recovered/Resolved]

NARRATIVE: CASE EVENT DATE: 20191223
